FAERS Safety Report 9929465 (Version 1)
Quarter: 2014Q1

REPORT INFORMATION
  Report Type: Report from Study
  Country: CA (occurrence: CA)
  Receive Date: 20140227
  Receipt Date: 20140227
  Transmission Date: 20141002
  Serious: Yes (Other)
  Sender: FDA-Public Use
  Company Number: CA-GLAXOSMITHKLINE-A1062173A

PATIENT
  Age: 8 Year
  Sex: 0

DRUGS (1)
  1. FLOVENT [Suspect]
     Indication: ASTHMA
     Route: 065

REACTIONS (1)
  - Growth retardation [Unknown]
